FAERS Safety Report 11810079 (Version 1)
Quarter: 2015Q4

REPORT INFORMATION
  Report Type: Spontaneous
  Country: US (occurrence: None)
  Receive Date: 20151207
  Receipt Date: 20151207
  Transmission Date: 20160305
  Serious: Yes (Life-Threatening, Hospitalization)
  Sender: FDA-Public Use
  Company Number: None

PATIENT
  Age: 30 Year
  Sex: Male
  Weight: 92 kg

DRUGS (1)
  1. SUCCINYLCHOLINE 20MG/ML, 10ML HOSPIRA [Suspect]
     Active Substance: SUCCINYLCHOLINE
     Indication: ENDOTRACHEAL INTUBATION
     Dates: start: 20151028

REACTIONS (9)
  - Functional gastrointestinal disorder [None]
  - Renal impairment [None]
  - Acidosis [None]
  - Septic shock [None]
  - Respiratory failure [None]
  - Hyperthermia malignant [None]
  - Wound infection [None]
  - Tachycardia [None]
  - Liver function test abnormal [None]

NARRATIVE: CASE EVENT DATE: 20151028
